FAERS Safety Report 25918317 (Version 1)
Quarter: 2025Q4

REPORT INFORMATION
  Report Type: Spontaneous
  Country: CN (occurrence: CN)
  Receive Date: 20251014
  Receipt Date: 20251014
  Transmission Date: 20260118
  Serious: Yes (Life-Threatening, Hospitalization, Other)
  Sender: MERZ
  Company Number: CN-MRZWEB-2025100000076

PATIENT

DRUGS (1)
  1. BOTULINUM TOXIN TYPE A [Suspect]
     Active Substance: BOTULINUM TOXIN TYPE A
     Indication: Skin cosmetic procedure
     Dosage: 100 INTERNATIONAL UNIT

REACTIONS (4)
  - Brain oedema [Recovered/Resolved]
  - Botulism [Recovered/Resolved]
  - Rash erythematous [Unknown]
  - Off label use [Unknown]
